FAERS Safety Report 4555618-2 (Version None)
Quarter: 2005Q1

REPORT INFORMATION
  Report Type: 
  Country: None (occurrence: None)
  Receive Date: 20041228
  Receipt Date: 20040301
  Transmission Date: 20050727
  Serious: Yes (Other)
  Sender: FDA-Public Use
  Company Number: PHEH2004US02126

PATIENT
  Age: 67 Year
  Sex: Female

DRUGS (11)
  1. AREDIA [Suspect]
     Indication: MULTIPLE MYELOMA
     Dosage: 90 MG, QMO, INTRAVENOUS
     Route: 042
     Dates: start: 19950101, end: 20040120
  2. TOPROL-XL [Concomitant]
  3. CATAPRES [Concomitant]
  4. COZAAR [Concomitant]
  5. NORVASC [Concomitant]
  6. FUROSEMIDE [Concomitant]
  7. SYNTHROID [Concomitant]
  8. THALIDOMIDE [Concomitant]
  9. PROTONIX [Concomitant]
  10. MELPHALAN [Concomitant]
  11. PREDNISONE [Concomitant]

REACTIONS (4)
  - DENTAL OPERATION [None]
  - ORAL SURGERY [None]
  - OSTEONECROSIS [None]
  - TOOTH ABSCESS [None]
